FAERS Safety Report 7655566-5 (Version None)
Quarter: 2011Q3

REPORT INFORMATION
  Report Type: 
  Country: None (occurrence: None)
  Receive Date: 20110804
  Receipt Date: 20110728
  Transmission Date: 20111222
  Serious: Yes (Hospitalization, Other)
  Sender: FDA-Public Use
  Company Number: US-BRISTOL-MYERS SQUIBB COMPANY-15935182

PATIENT
  Age: 56 Year
  Sex: Male
  Weight: 66 kg

DRUGS (24)
  1. ERBITUX [Suspect]
     Indication: NON-SMALL CELL LUNG CANCER
     Dosage: NO OF COURSES: 7
     Dates: start: 20110607, end: 20110705
  2. FOLIC ACID [Concomitant]
  3. TAXOL [Suspect]
     Indication: NON-SMALL CELL LUNG CANCER
     Dosage: NO OF COURSES: 7
     Dates: start: 20110607, end: 20110705
  4. MAGNESIUM OXIDE [Concomitant]
  5. TETRACYCLINE HCL [Concomitant]
  6. TRAMADOL HCL [Concomitant]
  7. VITAMIN D [Concomitant]
  8. MAALOX [Concomitant]
  9. VIAGRA [Concomitant]
  10. AMLODIPINE BESYLATE [Concomitant]
  11. GABAPENTIN [Concomitant]
  12. MIRALAX [Concomitant]
     Dosage: POWDER
  13. LIDOCAINE [Concomitant]
  14. MULTI-VITAMINS [Concomitant]
  15. POTASSIUM CHLORIDE [Concomitant]
     Dosage: POTASSIUM CHLORIDE CR
  16. BENADRYL [Concomitant]
  17. NYSTATIN [Concomitant]
  18. PLAVIX [Concomitant]
  19. ZOCOR [Concomitant]
  20. CARBOPLATIN [Suspect]
     Indication: NON-SMALL CELL LUNG CANCER
     Dosage: NO OF COURSES: 7
     Dates: start: 20110607, end: 20110705
  21. ATENOLOL [Suspect]
  22. LISINOPRIL [Suspect]
  23. CALCIUM CARBONATE [Concomitant]
  24. NICODERM CQ [Concomitant]

REACTIONS (4)
  - DECREASED APPETITE [None]
  - NEUTROPHIL COUNT DECREASED [None]
  - HYPOTENSION [None]
  - WHITE BLOOD CELL COUNT DECREASED [None]
